FAERS Safety Report 10812268 (Version 2)
Quarter: 2015Q1

REPORT INFORMATION
  Report Type: Spontaneous
  Country: DK (occurrence: DK)
  Receive Date: 20150218
  Receipt Date: 20150302
  Transmission Date: 20150721
  Serious: Yes (Other)
  Sender: FDA-Public Use
  Company Number: DK-AUROBINDO-AUR-APL-2015-01238

PATIENT
  Age: 11 Year
  Sex: Male

DRUGS (7)
  1. PREGABALIN. [Concomitant]
     Active Substance: PREGABALIN
     Indication: PRODUCT USED FOR UNKNOWN INDICATION
     Dosage: 0.8 MG/KG/DOSE
     Route: 048
  2. METHADONE [Suspect]
     Active Substance: METHADONE HYDROCHLORIDE
     Indication: NEOPLASM MALIGNANT
     Dosage: 25 MG/KG, DAILY
     Route: 042
  3. NORTRIPTYLINE [Concomitant]
     Active Substance: NORTRIPTYLINE
     Indication: PRODUCT USED FOR UNKNOWN INDICATION
     Dosage: 0.35 MG/KG/DOSE
     Route: 048
  4. AMITRIPTYLINE [Concomitant]
     Active Substance: AMITRIPTYLINE
     Indication: PRODUCT USED FOR UNKNOWN INDICATION
     Dosage: 0.35 MG/KG/DOSE
     Route: 048
  5. FLUCONAZOLE. [Suspect]
     Active Substance: FLUCONAZOLE
     Indication: PRODUCT USED FOR UNKNOWN INDICATION
     Dosage: UNK
     Route: 065
  6. METHADONE [Suspect]
     Active Substance: METHADONE HYDROCHLORIDE
     Indication: NEUROPATHY PERIPHERAL
     Dosage: UPTO 0.9MG/KG/HR (}10 MG/KG/DAY)
     Route: 042
  7. METHADONE [Suspect]
     Active Substance: METHADONE HYDROCHLORIDE
     Indication: NEURALGIA
     Dosage: 32.7 MG/KG, DAILY
     Route: 042

REACTIONS (5)
  - Electrocardiogram QT prolonged [Unknown]
  - Adverse drug reaction [Unknown]
  - Chills [Unknown]
  - Cold sweat [Unknown]
  - Somnolence [Unknown]
